FAERS Safety Report 6620317-X (Version None)
Quarter: 2010Q1

REPORT INFORMATION
  Report Type: 
  Country: None (occurrence: None)
  Receive Date: 20100308
  Receipt Date: 20100308
  Transmission Date: 20100710
  Serious: No
  Sender: FDA-Public Use
  Company Number: None

PATIENT
  Age: 48 Year
  Sex: Female

DRUGS (1)
  1. ZESTRIL [Suspect]
     Indication: HYPERTENSION
     Dosage: PO
     Route: 048

REACTIONS (1)
  - COUGH [None]
